FAERS Safety Report 8291308-0 (Version None)
Quarter: 2012Q2

REPORT INFORMATION
  Report Type: 
  Country: None (occurrence: None)
  Receive Date: 20120417
  Receipt Date: 20120405
  Transmission Date: 20120825
  Serious: Yes (Hospitalization)
  Sender: FDA-Public Use
  Company Number: FR-EISAI INC-E3810-05440-SPO-FR

PATIENT
  Sex: Female
  Weight: 60 kg

DRUGS (9)
  1. RABEPRAZOLE SODIUM [Suspect]
     Indication: PREMEDICATION
     Route: 048
     Dates: start: 20120227, end: 20120228
  2. ACUPAN [Suspect]
     Dates: start: 20120224, end: 20120225
  3. ACETAMINOPHEN AND TRAMADOL HCL [Concomitant]
  4. PERINDOPRIL ERBUMINE [Concomitant]
  5. CRESTOR [Concomitant]
  6. LOVENOX [Concomitant]
  7. TRAMADOL HCL [Suspect]
     Route: 048
     Dates: start: 20120223, end: 20120228
  8. LYRICA [Suspect]
     Dosage: 25 MG TWICE DAILY INCREASED WEEKLY IN 50MG/DAY INCREMENTS UP TO MAX. 150 MG/DAY
     Route: 048
     Dates: start: 20120117, end: 20120223
  9. AMLODIPINE [Concomitant]

REACTIONS (1)
  - HALLUCINATION [None]
